FAERS Safety Report 15792535 (Version 1)
Quarter: 2019Q1

REPORT INFORMATION
  Report Type: Report from Study
  Country: CN (occurrence: CN)
  Receive Date: 20190107
  Receipt Date: 20190107
  Transmission Date: 20190417
  Serious: Yes (Other)
  Sender: FDA-Public Use
  Company Number: CN-ROCHE-2238143

PATIENT

DRUGS (1)
  1. CAPECITABINE. [Suspect]
     Active Substance: CAPECITABINE
     Indication: RECTAL CANCER
     Dosage: FROM DAY 1 OF RADIOTHERAPY AND CONTINUOUSLY FOR 14 DAYS, 30 MINUTES AFTER THE MEAL, AT A REST FOR 1
     Route: 048

REACTIONS (7)
  - White blood cell count decreased [Unknown]
  - Renal injury [Unknown]
  - Palmar-plantar erythrodysaesthesia syndrome [Unknown]
  - Nausea [Unknown]
  - Liver injury [Unknown]
  - Vomiting [Unknown]
  - Diarrhoea [Unknown]
